FAERS Safety Report 8077774-4 (Version None)
Quarter: 2012Q1

REPORT INFORMATION
  Report Type: 
  Country: None (occurrence: None)
  Receive Date: 20120127
  Receipt Date: 20120126
  Transmission Date: 20120608
  Serious: Yes (Death)
  Sender: FDA-Public Use
  Company Number: CHPA2012US002025

PATIENT
  Sex: Female

DRUGS (5)
  1. PERCOCET [Suspect]
     Indication: INTERVERTEBRAL DISC PROTRUSION
     Dosage: UNK
     Route: 048
  2. XANAX [Concomitant]
     Indication: ANXIETY
     Dosage: UNK
     Route: 048
  3. EXCEDRIN (MIGRAINE) [Suspect]
     Indication: MIGRAINE
     Dosage: UNK, UNK
     Route: 048
     Dates: start: 20111104
  4. TOPAMAX [Suspect]
     Indication: MIGRAINE
     Dosage: UNK, UNK
     Route: 048
     Dates: start: 20111104, end: 20111101
  5. EXCEDRIN PM TABLETS [Suspect]
     Indication: PAIN
     Dosage: UNK, UNK
     Route: 048

REACTIONS (6)
  - CARDIOMEGALY [None]
  - PULSE ABSENT [None]
  - SNORING [None]
  - DRUG ADMINISTRATION ERROR [None]
  - UNRESPONSIVE TO STIMULI [None]
  - DRUG INEFFECTIVE [None]
